FAERS Safety Report 16502268 (Version 1)
Quarter: 2019Q3

REPORT INFORMATION
  Report Type: Spontaneous
  Country: PL (occurrence: PL)
  Receive Date: 20190701
  Receipt Date: 20190701
  Transmission Date: 20191004
  Serious: Yes (Other)
  Sender: FDA-Public Use
  Company Number: PL-009507513-1906POL010055

PATIENT
  Age: 45 Year
  Sex: Male

DRUGS (2)
  1. KEYTRUDA [Suspect]
     Active Substance: PEMBROLIZUMAB
     Indication: LUNG SQUAMOUS CELL CARCINOMA STAGE IV
     Dosage: 200 MG, UNK
     Route: 042
     Dates: start: 20170407, end: 20180523
  2. KEYTRUDA [Suspect]
     Active Substance: PEMBROLIZUMAB
     Dosage: GIVEN PEMBROLIZUMAB 200 MG IV
     Route: 042
     Dates: start: 20180113

REACTIONS (5)
  - Hepatotoxicity [Unknown]
  - Thyroxine free abnormal [Unknown]
  - Blood thyroid stimulating hormone abnormal [Unknown]
  - Platelet count abnormal [Unknown]
  - Tri-iodothyronine free abnormal [Unknown]

NARRATIVE: CASE EVENT DATE: 20180523
